FAERS Safety Report 17521746 (Version 1)
Quarter: 2020Q1

REPORT INFORMATION
  Report Type: Spontaneous
  Country: DE (occurrence: DE)
  Receive Date: 20200310
  Receipt Date: 20200310
  Transmission Date: 20200409
  Serious: Yes (Hospitalization, Other)
  Sender: FDA-Public Use
  Company Number: DE-PFIZER INC-2020097475

PATIENT
  Sex: Female

DRUGS (1)
  1. CYTOTEC [Suspect]
     Active Substance: MISOPROSTOL
     Indication: LABOUR INDUCTION
     Dosage: UNK
     Route: 064
     Dates: start: 20191112, end: 20191112

REACTIONS (4)
  - Foetal exposure during delivery [Unknown]
  - Neonatal infection [Unknown]
  - Heart disease congenital [Unknown]
  - Foetal heart rate abnormal [Unknown]

NARRATIVE: CASE EVENT DATE: 20191112
